FAERS Safety Report 15982235 (Version 7)
Quarter: 2019Q4

REPORT INFORMATION
  Report Type: Spontaneous
  Country: DE (occurrence: DE)
  Receive Date: 20190219
  Receipt Date: 20191213
  Transmission Date: 20200122
  Serious: Yes (Death, Hospitalization, Other)
  Sender: FDA-Public Use
  Company Number: DE-PFIZER INC-2019069919

PATIENT
  Age: 68 Year
  Sex: Female

DRUGS (38)
  1. PARACETAMOL B. BRAUN [Suspect]
     Active Substance: ACETAMINOPHEN
     Dosage: 4 G, 1X/DAY
     Route: 042
     Dates: start: 20180430, end: 20180501
  2. TOREM [TORASEMIDE] [Concomitant]
     Active Substance: TORSEMIDE
     Dosage: 5 MG, 1X/DAY, 5-0-0
     Route: 048
  3. NEBILET [Concomitant]
     Active Substance: NEBIVOLOL
     Dosage: 1.25 MG, 1X/DAY
     Route: 048
  4. ELIQUIS [Concomitant]
     Active Substance: APIXABAN
     Dosage: 2.5 MG, 2X/DAY
     Route: 048
  5. TRAMAL RETARD [Concomitant]
     Active Substance: TRAMADOL
     Indication: PAIN IN EXTREMITY
     Dosage: 100 MG, 1X/DAY
     Route: 065
     Dates: start: 201803
  6. PREDNISOLONE. [Concomitant]
     Active Substance: PREDNISOLONE
     Indication: HYPERSENSITIVITY PNEUMONITIS
     Dosage: 20 MG, 1X/DAY
     Route: 065
     Dates: end: 2018
  7. NOVALGIN (METAMIZOLE SODIUM) [Concomitant]
     Active Substance: METAMIZOLE SODIUM
     Dosage: 30 GTT, 3X/DAY
     Route: 065
  8. VIGANTOLETTEN [Concomitant]
     Active Substance: CHOLECALCIFEROL
     Dosage: 1000 IU, 2X/DAY
     Route: 065
  9. PREDNISOLONE. [Concomitant]
     Active Substance: PREDNISOLONE
     Indication: INTERSTITIAL LUNG DISEASE
     Dosage: 5 MG, 1X/DAY, 5-0-0
     Route: 048
  10. FOLIC ACID. [Concomitant]
     Active Substance: FOLIC ACID
     Dosage: 9.4 MG, WEEKLY
     Route: 065
     Dates: end: 201803
  11. SYMBICORT [Concomitant]
     Active Substance: BUDESONIDE\FORMOTEROL FUMARATE DIHYDRATE
     Dosage: 1 DF, 2X/DAY (1-0-1)
     Route: 048
     Dates: start: 2017
  12. SYMBICORT [Concomitant]
     Active Substance: BUDESONIDE\FORMOTEROL FUMARATE DIHYDRATE
     Dosage: 2 DF, 2X/DAY (2-0-2)
     Route: 048
     Dates: end: 2017
  13. NEBILET [Concomitant]
     Active Substance: NEBIVOLOL
     Indication: SINUS TACHYCARDIA
     Dosage: 2.5 MG, 1X/DAY
     Route: 048
  14. PERFALGAN [Concomitant]
     Active Substance: ACETAMINOPHEN
     Dosage: 1 G, 3X/DAY
     Route: 065
  15. NEBILET [Concomitant]
     Active Substance: NEBIVOLOL
     Dosage: 1.5 MG, 1X/DAY
     Route: 048
  16. VITAMIN B COMPLEX [Concomitant]
     Active Substance: CYANOCOBALAMIN\DEXPANTHENOL\NIACINAMIDE\PYRIDOXINE HYDROCHLORIDE\RIBOFLAVIN 5^-PHOSPHATE SODIUM\THIAMINE HYDROCHLORIDE\VITAMIN B COMPLEX
     Dosage: 1 DF (1 UG/L), 1X/DAY
     Route: 065
  17. METHOTREXATE. [Concomitant]
     Active Substance: METHOTREXATE
     Dosage: UNK
     Route: 065
  18. CLEXANE [Concomitant]
     Active Substance: ENOXAPARIN SODIUM
     Indication: SEGMENTED HYALINISING VASCULITIS
     Dosage: 0.8 ML, 2X/DAY
     Route: 065
  19. NOVALGIN (METAMIZOLE SODIUM) [Concomitant]
     Active Substance: METAMIZOLE SODIUM
     Dosage: 90 GTT, 1X/DAY
     Route: 048
  20. PANTOZOL [Concomitant]
     Active Substance: PANTOPRAZOLE SODIUM
     Dosage: 20 MG, 1X/DAY
     Route: 048
  21. VITAMIN B COMPLEX [Concomitant]
     Active Substance: CYANOCOBALAMIN\DEXPANTHENOL\NIACINAMIDE\PYRIDOXINE HYDROCHLORIDE\RIBOFLAVIN 5^-PHOSPHATE SODIUM\THIAMINE HYDROCHLORIDE\VITAMIN B COMPLEX
     Dosage: 1 DF, 1X/DAY
     Route: 065
  22. TOREM [TORASEMIDE] [Concomitant]
     Active Substance: TORSEMIDE
     Dosage: 10 MG, 1X/DAY
     Route: 065
  23. OXAZEPAM. [Concomitant]
     Active Substance: OXAZEPAM
     Dosage: 10 MG, AT NIGHT
     Route: 048
  24. BUDENOFALK [Concomitant]
     Active Substance: BUDESONIDE
     Dosage: 3 G, 2X/DAY
     Route: 065
  25. NOVALGIN (METAMIZOLE SODIUM) [Concomitant]
     Active Substance: METAMIZOLE SODIUM
     Dosage: 30 GTT, 3X/DAY
     Route: 048
  26. PANTOZOL [Concomitant]
     Active Substance: PANTOPRAZOLE SODIUM
     Dosage: 20 MG, 2X/DAY
     Route: 048
  27. PARACETAMOL [Suspect]
     Active Substance: ACETAMINOPHEN
     Indication: PAIN IN EXTREMITY
     Dosage: 500 MG, 3X/DAY
     Route: 048
     Dates: start: 20180314, end: 20180514
  28. SPIRIVA [Concomitant]
     Active Substance: TIOTROPIUM BROMIDE MONOHYDRATE
     Dosage: 1 DF, 1X/DAY
     Route: 048
     Dates: start: 2017
  29. METHOTREXATE SODIUM. [Suspect]
     Active Substance: METHOTREXATE SODIUM
     Indication: LEUKAEMIA
     Dosage: 5 MG, WEEKLY
     Route: 058
     Dates: start: 20180314, end: 20180518
  30. PARACETAMOL B. BRAUN [Suspect]
     Active Substance: ACETAMINOPHEN
     Dosage: 1 G, 1X/DAY
     Route: 042
     Dates: start: 20180430, end: 20180501
  31. PARACETAMOL [Suspect]
     Active Substance: ACETAMINOPHEN
     Dosage: 500 MG, 3X/DAY
     Route: 048
     Dates: start: 20180314, end: 20180514
  32. LYRICA [Concomitant]
     Active Substance: PREGABALIN
     Dosage: 25 MG, 1X/DAY
     Route: 048
  33. PREDNISOLONE. [Concomitant]
     Active Substance: PREDNISOLONE
     Dosage: 10 MG, 1X/DAY
     Route: 065
     Dates: start: 2018
  34. OXAZEPAM. [Concomitant]
     Active Substance: OXAZEPAM
     Dosage: 5 MG, 1X/DAY (AT NIGHT), 0-0-0-5
     Route: 048
  35. IDEOS [Concomitant]
     Active Substance: CALCIUM CARBONATE\CHOLECALCIFEROL
     Dosage: 1 DF, 2X/DAY
     Route: 065
  36. NOVALGIN (METAMIZOLE SODIUM) [Concomitant]
     Active Substance: METAMIZOLE SODIUM
     Dosage: 30 GTT, 4X/DAY
     Route: 065
  37. TILIDIN [Concomitant]
     Active Substance: NALOXONE HYDROCHLORIDE\TILIDINE HYDROCHLORIDE
     Indication: PAIN IN EXTREMITY
     Dosage: UNK
     Route: 065
  38. TRAMAL [Concomitant]
     Active Substance: TRAMADOL
     Indication: PAIN IN EXTREMITY
     Dosage: UNK

REACTIONS (16)
  - Hyponatraemia [Fatal]
  - Hypoglycaemia [Unknown]
  - Hepatic failure [Fatal]
  - Ulcer [Unknown]
  - Electrolyte imbalance [Fatal]
  - Dyspnoea [Unknown]
  - Skin haemorrhage [Recovered/Resolved]
  - Syncope [Recovered/Resolved]
  - Hypokalaemia [Fatal]
  - Hepatic enzyme increased [Fatal]
  - Hyperhidrosis [Unknown]
  - Liver disorder [Fatal]
  - Skin ulcer [Unknown]
  - Peripheral swelling [Unknown]
  - Loss of consciousness [Recovered/Resolved]
  - Tachycardia [Unknown]

NARRATIVE: CASE EVENT DATE: 2018
